FAERS Safety Report 16098964 (Version 1)
Quarter: 2019Q1

REPORT INFORMATION
  Report Type: Spontaneous
  Country: US (occurrence: US)
  Receive Date: 20190321
  Receipt Date: 20190321
  Transmission Date: 20190418
  Serious: No
  Sender: FDA-Public Use
  Company Number: US-PFIZER INC-2019119338

PATIENT
  Age: 46 Year
  Sex: Female

DRUGS (9)
  1. MOXIFLOXACIN. [Suspect]
     Active Substance: MOXIFLOXACIN
     Dosage: UNK
  2. ERYTHROMYCIN. [Suspect]
     Active Substance: ERYTHROMYCIN
     Dosage: UNK
  3. TYLENOL [Suspect]
     Active Substance: ACETAMINOPHEN
     Dosage: UNK
  4. MACROBID [CLARITHROMYCIN] [Suspect]
     Active Substance: CLARITHROMYCIN
     Dosage: UNK
  5. LAMOTRIGINE. [Suspect]
     Active Substance: LAMOTRIGINE
     Dosage: UNK
  6. CIPRO [Suspect]
     Active Substance: CIPROFLOXACIN HYDROCHLORIDE
     Dosage: UNK
  7. DIVALPROEX SODIUM. [Suspect]
     Active Substance: DIVALPROEX SODIUM
     Dosage: UNK
  8. HYDROCODONE [Suspect]
     Active Substance: HYDROCODONE
     Dosage: UNK
  9. BETAMETHASONE BENZOATE [Suspect]
     Active Substance: BETAMETHASONE BENZOATE
     Dosage: UNK

REACTIONS (1)
  - Drug hypersensitivity [Unknown]
